FAERS Safety Report 7099656-7 (Version None)
Quarter: 2010Q4

REPORT INFORMATION
  Report Type: 
  Country: None (occurrence: None)
  Receive Date: 20101112
  Receipt Date: 20101108
  Transmission Date: 20110411
  Serious: Yes (Other)
  Sender: FDA-Public Use
  Company Number: JP-PFIZER INC-2010142964

PATIENT
  Age: 70 Year
  Sex: Male

DRUGS (7)
  1. LYRICA [Suspect]
     Indication: POST HERPETIC NEURALGIA
     Dosage: 100 MG, DAILY
     Route: 048
     Dates: start: 20100823
  2. LYRICA [Suspect]
     Dosage: 200 MG DAILY
     Route: 048
  3. HYPEN [Concomitant]
     Dosage: UNK
  4. MUCOSTA [Concomitant]
     Dosage: UNK
  5. CYANOCOBALAMIN [Concomitant]
     Dosage: UNK
  6. GOSHAJINKIGAN [Concomitant]
     Dosage: UNK
  7. MAGNESIUM [Concomitant]
     Dosage: UNK

REACTIONS (3)
  - COORDINATION ABNORMAL [None]
  - DYSARTHRIA [None]
  - DYSGRAPHIA [None]
